FAERS Safety Report 20753469 (Version 1)
Quarter: 2022Q2

REPORT INFORMATION
  Report Type: Spontaneous
  Country: US (occurrence: None)
  Receive Date: 20220426
  Receipt Date: 20220426
  Transmission Date: 20220720
  Serious: No
  Sender: FDA-Public Use
  Company Number: US-ROCHE-2840172

PATIENT
  Age: 73 Year
  Sex: Female

DRUGS (1)
  1. ESBRIET [Suspect]
     Active Substance: PIRFENIDONE
     Indication: Idiopathic pulmonary fibrosis
     Route: 048
     Dates: start: 20210317

REACTIONS (5)
  - Dizziness [Unknown]
  - Hot flush [Unknown]
  - Insomnia [Unknown]
  - Gait disturbance [Unknown]
  - Flushing [Unknown]

NARRATIVE: CASE EVENT DATE: 20210401
